FAERS Safety Report 25906014 (Version 1)
Quarter: 2025Q4

REPORT INFORMATION
  Report Type: Report from Study
  Country: UA (occurrence: UA)
  Receive Date: 20251010
  Receipt Date: 20251010
  Transmission Date: 20260118
  Serious: Yes (Other)
  Sender: PFIZER
  Company Number: UA-TAKEDA-2025TUS087878

PATIENT
  Age: 43 Year
  Sex: Female

DRUGS (1)
  1. ADCETRIS [Suspect]
     Active Substance: BRENTUXIMAB VEDOTIN
     Indication: Hodgkin^s disease refractory
     Dosage: 114 MG, EVERY 3 WEEKS (3 VIALS)
     Route: 042
     Dates: start: 20250106

REACTIONS (1)
  - Polyneuropathy [Unknown]
